FAERS Safety Report 9889095 (Version 2)
Quarter: 2014Q2

REPORT INFORMATION
  Report Type: Spontaneous
  Country: JP (occurrence: JP)
  Receive Date: 20140211
  Receipt Date: 20140617
  Transmission Date: 20141212
  Serious: Yes (Life-Threatening, Other)
  Sender: FDA-Public Use
  Company Number: JP-TAKEDA-2014TJP001343

PATIENT
  Age: 64 Year
  Sex: Male
  Weight: 85.7 kg

DRUGS (18)
  1. METACT COMBINATION TABLETS LD [Suspect]
     Indication: DIABETES MELLITUS
     Dosage: 1 DF, QD
     Route: 048
     Dates: start: 20120903, end: 20140205
  2. ACTOS TABLETS 15 [Suspect]
     Indication: DIABETES MELLITUS
     Dosage: 15 MG, UNK
     Route: 048
     Dates: start: 20020215, end: 20120902
  3. DIOVAN [Concomitant]
     Indication: HYPERTENSION
     Dosage: 40 MG, QD
     Route: 048
     Dates: start: 20011124, end: 20060816
  4. DIOVAN [Concomitant]
     Dosage: 60 MG, QD
     Route: 048
     Dates: start: 20060817, end: 20061224
  5. DIOVAN [Concomitant]
     Dosage: 80 MG, QD
     Route: 048
     Dates: start: 20061225, end: 20100128
  6. DIOVAN [Concomitant]
     Dosage: 120 MG, QD
     Route: 048
     Dates: start: 20100129, end: 20100228
  7. DIOVAN [Concomitant]
     Dosage: 160 MG, QD
     Route: 048
     Dates: start: 20100301, end: 20110513
  8. DIOVAN [Concomitant]
     Dosage: 80 MG, QD
     Route: 048
     Dates: start: 20110514, end: 20130203
  9. LIPITOR [Concomitant]
     Indication: HYPERLIPIDAEMIA
     Dosage: 5 MG, QD
     Route: 048
     Dates: start: 20010502
  10. AMLODIPINE                         /00972402/ [Concomitant]
     Indication: HYPERTENSION
     Dosage: 5 MG, QD
     Route: 048
     Dates: start: 20130203, end: 20130805
  11. EPADEL-S [Concomitant]
     Indication: HYPERLIPIDAEMIA
     Dosage: 900 MG, BID
     Route: 048
     Dates: start: 20080530
  12. CALBLOCK [Concomitant]
     Indication: HYPERTENSION
     Dosage: 8 MG, QD
     Route: 048
     Dates: start: 20100401, end: 20110513
  13. MICARDIS [Concomitant]
     Indication: HYPERTENSION
     Dosage: 80 MG, QD
     Route: 048
     Dates: start: 20130204, end: 20130805
  14. MICAMLO [Concomitant]
     Indication: HYPERTENSION
     Dosage: 1 DF, QD
     Route: 048
     Dates: start: 20130806
  15. EUGLUCON [Concomitant]
     Indication: DIABETES MELLITUS
     Dosage: 1.25 MG, BID
     Route: 048
     Dates: start: 20020405, end: 20030427
  16. METFORMIN HYDROCHLORIDE [Concomitant]
     Indication: DIABETES MELLITUS
     Dosage: 250 MG, BID
     Route: 048
     Dates: start: 20071201, end: 20080313
  17. METFORMIN HYDROCHLORIDE [Concomitant]
     Dosage: 250 MG, TID
     Route: 048
     Dates: start: 20080314, end: 20120902
  18. EXFORGE [Concomitant]
     Indication: HYPERTENSION
     Dosage: 1 DF, QD
     Route: 048
     Dates: start: 20110514, end: 20130203

REACTIONS (1)
  - Bladder cancer [Recovered/Resolved]
